FAERS Safety Report 6285221-8 (Version None)
Quarter: 2009Q3

REPORT INFORMATION
  Report Type: 
  Country: None (occurrence: None)
  Receive Date: 20090727
  Receipt Date: 20090720
  Transmission Date: 20100115
  Serious: Yes (Death, Other)
  Sender: FDA-Public Use
  Company Number: PHNU2007DE01691

PATIENT
  Sex: Male
  Weight: 82 kg

DRUGS (38)
  1. TEGRETOL-XR [Suspect]
     Indication: GRAND MAL CONVULSION
     Dosage: 1 DF, QD
     Route: 048
     Dates: start: 20060304
  2. TEGRETOL-XR [Suspect]
     Dosage: 1 DF, BID
     Route: 048
     Dates: start: 20060305, end: 20060306
  3. TEGRETOL-XR [Suspect]
     Dosage: 1 DF, TID
     Route: 048
     Dates: start: 20060307, end: 20060409
  4. VOLTAREN [Concomitant]
     Dosage: 1 DF, TID
     Route: 048
     Dates: start: 20030305, end: 20060308
  5. PANTOZOL [Concomitant]
     Dosage: 1 DF, QD
     Route: 065
     Dates: start: 20060305, end: 20060308
  6. KONAKION [Concomitant]
     Dosage: 20 DRP, UNK
     Route: 065
     Dates: start: 20060401
  7. DECORTIN [Concomitant]
     Indication: AUTOIMMUNE HEPATITIS
     Dosage: 1 DF, QD
     Route: 065
     Dates: start: 20060401
  8. DECORTIN [Concomitant]
     Dosage: 250 MG, UNK
     Route: 042
     Dates: start: 20060407
  9. URSO FALK [Concomitant]
     Dosage: 3 DF/DAY
     Route: 065
     Dates: start: 20060401
  10. PROTON PUMP INHIBITORS [Concomitant]
     Indication: GASTRITIS
     Dosage: ^HIGH DOSE^
     Dates: start: 20060401
  11. ACYCLOVIR [Concomitant]
     Dosage: 1 DF, QD
     Route: 042
  12. COTRIM [Concomitant]
     Dosage: 1 DF, QW3
     Route: 042
  13. LASIX [Concomitant]
     Route: 042
  14. IMMUNE GLOBULIN INTRAVENOUS (HUMAN) [Concomitant]
     Route: 042
  15. SODIUM CHLORIDE [Concomitant]
     Dosage: 1 DF, 6QD
  16. ENOXAPARIN SODIUM [Concomitant]
     Dosage: 1 DF, QD
     Route: 058
  17. NEURONTIN [Concomitant]
     Dosage: 1 DF, TID
     Route: 048
  18. SACCHAROMYCES BOULARDII [Concomitant]
     Dosage: 1 DF, BID
     Route: 048
  19. CANDIO-HERMAL [Concomitant]
     Dosage: 1 DF, QID
     Route: 048
  20. REMERGIL [Concomitant]
     Dosage: 1 DF, QD
     Route: 048
  21. TAVOR [Concomitant]
     Dosage: 1 DF, TID
     Route: 048
  22. ZOVIRAX [Concomitant]
     Dosage: 1 DF, QD
  23. DEXPANTHENOL [Concomitant]
     Dosage: 1 DF, QD
  24. POLYSPECTRAN TROPFEN [Concomitant]
     Dosage: 1 DF, BID
  25. ROCEPHIN [Concomitant]
     Route: 065
     Dates: start: 20060407
  26. CALCIPARINE [Concomitant]
     Dosage: 7500 IU, QD
     Route: 058
     Dates: start: 20060406, end: 20060406
  27. CALCIPARINE [Concomitant]
     Dosage: 7500 IU, BID
     Route: 058
     Dates: start: 20060407, end: 20060407
  28. CALCIPARINE [Concomitant]
     Dosage: 1 DF, UNK
     Route: 065
     Dates: start: 20060409
  29. REKAWAN [Concomitant]
     Dosage: 1 DF, QD
     Route: 065
     Dates: start: 20060406, end: 20060406
  30. REKAWAN [Concomitant]
     Dosage: 1 DF, TID
     Route: 065
     Dates: start: 20060407, end: 20060407
  31. REKAWAN [Concomitant]
     Dosage: 1 DF, BID
     Route: 065
     Dates: start: 20060409, end: 20060409
  32. FENISTIL [Concomitant]
     Dosage: 1 DF, UNK
     Route: 042
     Dates: start: 20060407, end: 20060407
  33. FENISTIL-RETARD [Concomitant]
     Dosage: 1 DF, QD
     Route: 065
     Dates: start: 20060408
  34. FENISTIL-RETARD [Concomitant]
     Dosage: UNK, PRN
     Route: 065
     Dates: start: 20060416
  35. RANITIDINE [Concomitant]
     Dosage: 1 DF, UNK
     Route: 042
     Dates: start: 20060407
  36. DIPIDOLOR [Concomitant]
     Dosage: 1 DF, UNK
     Route: 065
     Dates: start: 20060407
  37. AMPHOTERICIN B [Concomitant]
     Dosage: 1 DF, QID
  38. FRISIUM [Concomitant]
     Indication: EPILEPSY

REACTIONS (95)
  - ADRENAL ADENOMA [None]
  - ANAEMIA [None]
  - ANTHRAX [None]
  - APOPTOSIS [None]
  - ARTERIOSCLEROSIS [None]
  - ARTERIOSCLEROSIS CORONARY ARTERY [None]
  - ASCITES [None]
  - BIOPSY LIVER ABNORMAL [None]
  - BLOOD BILIRUBIN INCREASED [None]
  - BLOOD CHOLINESTERASE DECREASED [None]
  - BLOOD CREATININE INCREASED [None]
  - BLOOD UREA INCREASED [None]
  - BRONCHIAL HAEMORRHAGE [None]
  - CARDIAC DISORDER [None]
  - CHOLANGITIS [None]
  - CHOLECYSTITIS [None]
  - CHOLELITHIASIS [None]
  - CHOLESTASIS [None]
  - CRITICAL ILLNESS POLYNEUROPATHY [None]
  - DECUBITUS ULCER [None]
  - DEPRESSED LEVEL OF CONSCIOUSNESS [None]
  - DEPRESSED MOOD [None]
  - DERMATITIS ALLERGIC [None]
  - DIALYSIS [None]
  - DISTURBANCE IN ATTENTION [None]
  - DYSPNOEA [None]
  - EMPHYSEMA [None]
  - ENTEROBACTER PNEUMONIA [None]
  - ENTEROCOCCAL INFECTION [None]
  - ERYTHEMA [None]
  - FAECAL INCONTINENCE [None]
  - FAT NECROSIS [None]
  - GASTRITIS EROSIVE [None]
  - GENERAL PHYSICAL CONDITION ABNORMAL [None]
  - GRAND MAL CONVULSION [None]
  - HAEMATURIA [None]
  - HAEMOGLOBIN ABNORMAL [None]
  - HEPATIC ENZYME INCREASED [None]
  - HEPATIC FAILURE [None]
  - HEPATIC STEATOSIS [None]
  - HEPATITIS [None]
  - HEPATOMEGALY [None]
  - HERPES SIMPLEX [None]
  - HISTOPLASMOSIS [None]
  - HYPERSENSITIVITY [None]
  - HYPOGAMMAGLOBULINAEMIA [None]
  - HYPOKALAEMIA [None]
  - IMMUNODEFICIENCY COMMON VARIABLE [None]
  - IMMUNOGLOBULINS DECREASED [None]
  - INFECTION [None]
  - INGUINAL HERNIA [None]
  - INTERNATIONAL NORMALISED RATIO INCREASED [None]
  - JAUNDICE [None]
  - KERATITIS HERPETIC [None]
  - LEFT VENTRICULAR HYPERTROPHY [None]
  - LIPASE INCREASED [None]
  - LUNG DISORDER [None]
  - LUNG INFILTRATION [None]
  - METABOLIC ENCEPHALOPATHY [None]
  - MOTOR DYSFUNCTION [None]
  - MUCOSAL ULCERATION [None]
  - MULTI-ORGAN FAILURE [None]
  - MYOCARDIAL FIBROSIS [None]
  - NASAL DISORDER [None]
  - NEPHROSCLEROSIS [None]
  - OEDEMA PERIPHERAL [None]
  - OESOPHAGEAL ULCER [None]
  - OESOPHAGITIS ULCERATIVE [None]
  - ORAL CANDIDIASIS [None]
  - ORAL HERPES [None]
  - PANCREATITIS [None]
  - PERICARDIAL EFFUSION [None]
  - PLEURAL EFFUSION [None]
  - PNEUMOCYSTIS JIROVECI PNEUMONIA [None]
  - PNEUMONIA [None]
  - PNEUMONIA KLEBSIELLA [None]
  - POLYNEUROPATHY [None]
  - PROTEIN TOTAL DECREASED [None]
  - PROTHROMBIN TIME PROLONGED [None]
  - PULMONARY CONGESTION [None]
  - RED BLOOD CELL COUNT DECREASED [None]
  - REFLUX OESOPHAGITIS [None]
  - RENAL DISORDER [None]
  - RENAL FAILURE [None]
  - RESPIRATORY FAILURE [None]
  - RIB FRACTURE [None]
  - SOMNOLENCE [None]
  - SPEECH DISORDER [None]
  - SPLENOMEGALY [None]
  - SWELLING [None]
  - TRACHEOBRONCHITIS [None]
  - TUBULOINTERSTITIAL NEPHRITIS [None]
  - URINARY INCONTINENCE [None]
  - URINARY RETENTION [None]
  - VANISHING BILE DUCT SYNDROME [None]
